FAERS Safety Report 8676512 (Version 3)
Quarter: 2013Q4

REPORT INFORMATION
  Report Type: Spontaneous
  Country: US (occurrence: None)
  Receive Date: 20120406
  Receipt Date: 20131226
  Transmission Date: 20140711
  Serious: Yes (Hospitalization)
  Sender: FDA-Public Use
  Company Number: PHEH2010US02814

PATIENT
  Sex: Male

DRUGS (3)
  1. TASIGNA [Suspect]
     Indication: CHRONIC MYELOID LEUKAEMIA
     Dosage: 400 MG, BID,ORAL
     Route: 048
     Dates: start: 20100218, end: 20100222
  2. ASPIRIN [Suspect]
  3. PLAVIX (CLOPIDOGREL) [Suspect]

REACTIONS (4)
  - Gastric ulcer haemorrhage [None]
  - Melaena [None]
  - Abdominal discomfort [None]
  - Hypersensitivity [None]
